FAERS Safety Report 26160936 (Version 1)
Quarter: 2025Q4

REPORT INFORMATION
  Report Type: Spontaneous
  Country: US (occurrence: US)
  Receive Date: 20251216
  Receipt Date: 20251216
  Transmission Date: 20260118
  Serious: Yes (Other)
  Sender: BRISTOL-MYERS SQUIBB COMPANY
  Company Number: US-BRISTOL-MYERS SQUIBB COMPANY-2025-164324

PATIENT
  Age: 47 Year
  Sex: Female
  Weight: 56.69 kg

DRUGS (1)
  1. KENALOG-40 [Suspect]
     Active Substance: TRIAMCINOLONE ACETONIDE
     Indication: Intervertebral disc protrusion
     Route: 008
     Dates: start: 20250319, end: 20250319

REACTIONS (7)
  - Tremor [Unknown]
  - Weight decreased [Unknown]
  - Postural orthostatic tachycardia syndrome [Unknown]
  - Tachycardia [Unknown]
  - Off label use [Unknown]
  - Nausea [Unknown]
  - Anxiety [Unknown]

NARRATIVE: CASE EVENT DATE: 20250301
